FAERS Safety Report 8817799 (Version 1)
Quarter: 2012Q4

REPORT INFORMATION
  Report Type: 
  Country: GB (occurrence: GB)
  Receive Date: 20121002
  Receipt Date: 20121002
  Transmission Date: 20130627
  Serious: Yes (Other)
  Sender: FDA-Public Use
  Company Number: GB-EISAI INC-E2020-11433-SPO-GB

PATIENT
  Age: 89 Year
  Sex: Female

DRUGS (8)
  1. DONEPEZIL [Suspect]
     Indication: ALZHEIMER^S DISEASE
     Route: 048
     Dates: end: 20120712
  2. DONEPEZIL [Suspect]
     Route: 048
     Dates: start: 20120713, end: 20120904
  3. ASPIRIN [Concomitant]
  4. FUROSEMIDE [Concomitant]
  5. LOSARTAN [Concomitant]
  6. MOXONIDINE [Concomitant]
  7. QVAR [Concomitant]
  8. RISEDRONATE [Concomitant]

REACTIONS (5)
  - Hypomania [Not Recovered/Not Resolved]
  - Inappropriate affect [Unknown]
  - Energy increased [Unknown]
  - Delusion [Unknown]
  - Insomnia [Unknown]
